FAERS Safety Report 9537695 (Version 4)
Quarter: 2014Q2

REPORT INFORMATION
  Report Type: Spontaneous
  Country: US (occurrence: US)
  Receive Date: 20130919
  Receipt Date: 20140429
  Transmission Date: 20141212
  Serious: Yes (Hospitalization)
  Sender: FDA-Public Use
  Company Number: US-B.I. PHARMACEUTICALS,INC./RIDGEFIELD-2013-BI-29075BP

PATIENT
  Sex: Female
  Weight: 59.87 kg

DRUGS (18)
  1. PRADAXA [Suspect]
     Indication: ATRIAL FIBRILLATION
     Dosage: 300 MG
     Route: 065
     Dates: start: 20121207, end: 20130131
  2. MULTAQ [Suspect]
     Indication: ATRIAL FIBRILLATION
     Route: 065
  3. MULTAQ [Suspect]
     Indication: PULSE ABNORMAL
  4. B12 [Concomitant]
     Route: 048
  5. FERGON [Concomitant]
     Route: 065
  6. D3 [Concomitant]
     Route: 065
  7. LOW DOSE ASPIRIN [Concomitant]
     Dosage: 325 MG
     Route: 065
  8. XANAX [Concomitant]
     Route: 065
  9. LIPITOR [Concomitant]
     Route: 065
     Dates: start: 2008
  10. CHROMOGEN [Concomitant]
     Route: 065
  11. LASIX [Concomitant]
     Route: 065
     Dates: start: 2011
  12. NEURONTIN [Concomitant]
     Route: 065
  13. GABAPENTIN [Concomitant]
     Route: 065
     Dates: start: 2008
  14. ZANTAC [Concomitant]
     Route: 065
  15. NAPROXEN [Concomitant]
     Route: 065
  16. TALWIN NX [Concomitant]
     Indication: PAIN
     Route: 065
  17. INDERAL LA [Concomitant]
     Dosage: 80 MG
     Route: 065
     Dates: start: 2006
  18. TRAMADOL [Concomitant]
     Route: 065
     Dates: start: 2007

REACTIONS (3)
  - Upper gastrointestinal haemorrhage [Unknown]
  - Iron deficiency anaemia [Unknown]
  - Coagulopathy [Unknown]
